FAERS Safety Report 15948042 (Version 2)
Quarter: 2019Q1

REPORT INFORMATION
  Report Type: Spontaneous
  Country: US (occurrence: US)
  Receive Date: 20190211
  Receipt Date: 20190306
  Transmission Date: 20190417
  Serious: No
  Sender: FDA-Public Use
  Company Number: US-009507513-1902USA002537

PATIENT
  Age: 59 Year
  Sex: Female

DRUGS (2)
  1. ENTACAPONE. [Concomitant]
     Active Substance: ENTACAPONE
     Indication: BASAL GANGLION DEGENERATION
     Dosage: 100 MILLIGRAM (HALF TABLET) SOMETIMES 10 TIMES A DAY
     Route: 048
  2. SINEMET [Suspect]
     Active Substance: CARBIDOPA\LEVODOPA
     Indication: BASAL GANGLION DEGENERATION
     Dosage: SOMETIMES 10 TIMES A DAY
     Route: 048
     Dates: start: 2012

REACTIONS (5)
  - Hot flush [Unknown]
  - Blood pressure decreased [Unknown]
  - Blood pressure increased [Unknown]
  - Product use in unapproved indication [Unknown]
  - Inappropriate schedule of product administration [Unknown]

NARRATIVE: CASE EVENT DATE: 2012
